FAERS Safety Report 8256559-X (Version None)
Quarter: 2012Q2

REPORT INFORMATION
  Report Type: 
  Country: None (occurrence: None)
  Receive Date: 20120403
  Receipt Date: 20120330
  Transmission Date: 20120825
  Serious: Yes (Other)
  Sender: FDA-Public Use
  Company Number: US-PFIZER INC-2011018761

PATIENT
  Sex: Female

DRUGS (4)
  1. SEROQUEL [Concomitant]
     Dosage: UNK
  2. LYRICA [Suspect]
     Indication: PARAESTHESIA
  3. LYRICA [Suspect]
     Indication: CERVICAL SPINAL STENOSIS
     Dosage: 75 MG, 3X/DAY
     Route: 048
     Dates: start: 20090101
  4. LYRICA [Suspect]
     Indication: HYPOAESTHESIA
     Dosage: 100 MG
     Route: 048

REACTIONS (8)
  - RASH PAPULAR [None]
  - PAIN [None]
  - OROPHARYNGEAL PAIN [None]
  - NERVOUS SYSTEM DISORDER [None]
  - BEDRIDDEN [None]
  - MEMORY IMPAIRMENT [None]
  - WEIGHT INCREASED [None]
  - PRURITUS [None]
